FAERS Safety Report 13696318 (Version 1)
Quarter: 2017Q2

REPORT INFORMATION
  Report Type: Report from Study
  Country: CN (occurrence: CN)
  Receive Date: 20170628
  Receipt Date: 20170628
  Transmission Date: 20170830
  Serious: Yes (Other)
  Sender: FDA-Public Use
  Company Number: CN-ROCHE-1951259

PATIENT

DRUGS (6)
  1. CAPECITABINE. [Suspect]
     Active Substance: CAPECITABINE
     Indication: COLON CANCER
     Dosage: 1000 MG/M2 BID, FOR DAY 1-14 IN THE XELOX TRI-WEEK REGIMEN AND XELIRI TRI-WEEK REGIMEN AND 825 MG/M2
     Route: 065
  2. IRINOTECAN [Suspect]
     Active Substance: IRINOTECAN
     Indication: COLON CANCER
     Dosage: FOR THE FIRST DAY IN THE XELIRI TRI-WEEK REGIMEN
     Route: 065
  3. FLUOROURACIL. [Suspect]
     Active Substance: FLUOROURACIL
     Dosage: FOR 2 DAYS IN TOTAL, CONTINUOUS INTRAVENOUS INJECTION RECEIVED IN MFOLFOX6 BI-WEEK REGIMEN
     Route: 042
  4. TETRAHYDROFOLATE [Suspect]
     Active Substance: FOLIC ACID
     Indication: COLON CANCER
     Dosage: FOR THE FIRST DAY RECEIVED IN MFOLFOX6 BI-WEEK REGIMEN
     Route: 065
  5. OXALIPLATIN. [Suspect]
     Active Substance: OXALIPLATIN
     Indication: COLON CANCER
     Dosage: 85 MG/M2 FOR THE FIRST DAY IN THE MFOLFOX6 BI-WEEK REGIMEN AND 130 MG/M2 FOR THE FIRST DAY, ADJUSTED
     Route: 065
  6. FLUOROURACIL. [Suspect]
     Active Substance: FLUOROURACIL
     Indication: COLON CANCER
     Dosage: FOR THE FIRST DAY RECEIVED IN MFOLFOX6 BI-WEEK REGIMEN
     Route: 042

REACTIONS (4)
  - Intestinal obstruction [Unknown]
  - Palmar-plantar erythrodysaesthesia syndrome [Unknown]
  - Radiation skin injury [Unknown]
  - Haematotoxicity [Unknown]
